FAERS Safety Report 6081882-7 (Version None)
Quarter: 2009Q1

REPORT INFORMATION
  Report Type: 
  Country: None (occurrence: None)
  Receive Date: 20090218
  Receipt Date: 20080506
  Transmission Date: 20090719
  Serious: No
  Sender: FDA-Public Use
  Company Number: US-BRISTOL-MYERS SQUIBB COMPANY-14177836

PATIENT
  Sex: Female

DRUGS (3)
  1. GLUCOPHAGE [Suspect]
     Route: 048
  2. ACTOS [Concomitant]
     Route: 048
  3. ROZEREM [Concomitant]
     Route: 048
     Dates: start: 20080414

REACTIONS (2)
  - SLEEP DISORDER [None]
  - WEIGHT DECREASED [None]
